FAERS Safety Report 8438195-5 (Version None)
Quarter: 2012Q2

REPORT INFORMATION
  Report Type: 
  Country: None (occurrence: None)
  Receive Date: 20120614
  Receipt Date: 20120607
  Transmission Date: 20120825
  Serious: Yes (Death)
  Sender: FDA-Public Use
  Company Number: CHPA2012US012034

PATIENT
  Sex: Female

DRUGS (1)
  1. EXCEDRIN EXTRA STRENGTH TABLETS [Suspect]
     Indication: HEADACHE
     Dosage: 2-3 DF, UNK
     Route: 048
     Dates: end: 19860601

REACTIONS (2)
  - CHEMICAL POISONING [None]
  - INCORRECT DOSE ADMINISTERED [None]
